FAERS Safety Report 5562451-1 (Version None)
Quarter: 2007Q4

REPORT INFORMATION
  Report Type: 
  Country: None (occurrence: None)
  Receive Date: 20071215
  Receipt Date: 20070720
  Transmission Date: 20080405
  Serious: No
  Sender: FDA-Public Use
  Company Number: US-AMGEN-US235136

PATIENT
  Sex: Male
  Weight: 95.3 kg

DRUGS (15)
  1. ARANESP [Suspect]
     Indication: RENAL FAILURE CHRONIC
     Route: 058
     Dates: start: 20061025
  2. NORVASC [Concomitant]
     Route: 065
  3. PHOSLO [Concomitant]
     Route: 065
  4. CELEXA [Concomitant]
     Route: 065
  5. VITAMIN CAP [Concomitant]
     Route: 065
  6. PROTONIX [Concomitant]
     Route: 065
  7. PREDNISONE [Concomitant]
     Route: 065
  8. CYTOXAN [Concomitant]
     Route: 065
  9. FERROUS SULFATE TAB [Concomitant]
     Route: 065
  10. AMBIEN [Concomitant]
     Route: 065
  11. CYANOCOBALAMIN [Concomitant]
     Route: 065
  12. FUROSEMIDE [Concomitant]
     Route: 065
  13. BACTRIM DS [Concomitant]
     Route: 065
  14. TYLENOL (CAPLET) [Concomitant]
     Route: 065
  15. PHENERGAN HCL [Concomitant]
     Route: 065

REACTIONS (1)
  - THERAPEUTIC RESPONSE DECREASED [None]
